FAERS Safety Report 16271087 (Version 1)
Quarter: 2019Q2

REPORT INFORMATION
  Report Type: Spontaneous
  Country: US (occurrence: US)
  Receive Date: 20190503
  Receipt Date: 20190503
  Transmission Date: 20190711
  Serious: No
  Sender: FDA-Public Use
  Company Number: US-BRISTOL-MYERS SQUIBB COMPANY-BMS-2019-044054

PATIENT
  Sex: Male
  Weight: 70.8 kg

DRUGS (1)
  1. APIXABAN [Suspect]
     Active Substance: APIXABAN
     Indication: SPLENIC INFARCTION
     Dosage: 5 MILLIGRAM
     Route: 048
     Dates: start: 20180725

REACTIONS (1)
  - Product use in unapproved indication [Unknown]
